FAERS Safety Report 6634991-5 (Version None)
Quarter: 2010Q1

REPORT INFORMATION
  Report Type: 
  Country: None (occurrence: None)
  Receive Date: 20100315
  Receipt Date: 20100129
  Transmission Date: 20100710
  Serious: Yes (Life-Threatening, Other)
  Sender: FDA-Public Use
  Company Number: US-BAXTER-2009BH015618

PATIENT
  Age: 54 Year
  Sex: Male
  Weight: 113 kg

DRUGS (23)
  1. HEPARIN SODIUM INJECTION [Suspect]
     Indication: DRUG USE FOR UNKNOWN INDICATION
     Route: 040
     Dates: start: 20070706, end: 20070706
  2. HEPARIN SODIUM INJECTION [Suspect]
     Route: 040
     Dates: start: 20070712, end: 20070712
  3. HEPARIN SODIUM 5,000 UNITS IN DEXTROSE 5% [Suspect]
     Indication: DRUG USE FOR UNKNOWN INDICATION
     Route: 042
     Dates: start: 20070629, end: 20070629
  4. HEPARIN SODIUM 5,000 UNITS IN DEXTROSE 5% [Suspect]
     Route: 042
     Dates: start: 20070702, end: 20070702
  5. HEPARIN SODIUM 5,000 UNITS IN DEXTROSE 5% [Suspect]
     Route: 042
     Dates: start: 20070706, end: 20070706
  6. HEPARIN SODIUM 5,000 UNITS IN DEXTROSE 5% [Suspect]
     Route: 042
     Dates: start: 20070708, end: 20070710
  7. CELLCEPT [Concomitant]
     Indication: PROPHYLAXIS AGAINST TRANSPLANT REJECTION
     Route: 065
  8. NEORAL [Concomitant]
     Indication: IMMUNOSUPPRESSANT DRUG THERAPY
     Route: 065
  9. TYLENOL-500 [Concomitant]
     Indication: DRUG USE FOR UNKNOWN INDICATION
     Route: 065
  10. ANTIDEPRESSANTS [Concomitant]
     Indication: DIABETIC NEUROPATHY
     Route: 065
  11. HYDRALAZINE HCL [Concomitant]
     Indication: POLYURIA
     Route: 065
  12. NEURONTIN [Concomitant]
     Indication: DIABETIC NEUROPATHY
     Route: 065
  13. PRAVASTATIN [Concomitant]
     Indication: HYPERCHOLESTEROLAEMIA
     Route: 065
  14. VITAMIN B-12 [Concomitant]
     Indication: DRUG USE FOR UNKNOWN INDICATION
     Route: 065
  15. DOPAMINE HCL [Concomitant]
     Indication: HYPOTENSION
     Route: 042
  16. DOBUTAMINE [Concomitant]
     Indication: CARDIAC FAILURE CONGESTIVE
     Route: 042
  17. LASIX [Concomitant]
     Indication: DYSPNOEA
  18. VANCOMYCIN [Concomitant]
     Indication: INFECTION
     Route: 042
  19. CIPROFLOXACIN HCL [Concomitant]
     Indication: INFECTION
     Route: 048
  20. COUMADIN [Concomitant]
     Indication: ANTICOAGULANT THERAPY
     Route: 048
  21. DIGOXIN [Concomitant]
     Indication: ATRIAL FIBRILLATION
  22. AMIODARONE HCL [Concomitant]
  23. INSULIN [Concomitant]
     Indication: DIABETES MELLITUS
     Route: 042

REACTIONS (9)
  - CARDIAC FAILURE CONGESTIVE [None]
  - CARDIOGENIC SHOCK [None]
  - CARDIOMYOPATHY [None]
  - COAGULOPATHY [None]
  - DRUG HYPERSENSITIVITY [None]
  - HAEMATURIA [None]
  - MEDIASTINAL HAEMORRHAGE [None]
  - PYREXIA [None]
  - THROMBOCYTOPENIA [None]
